FAERS Safety Report 10633990 (Version 1)
Quarter: 2014Q4

REPORT INFORMATION
  Report Type: Spontaneous
  Country: IT (occurrence: None)
  Receive Date: 20141203
  Receipt Date: 20141203
  Transmission Date: 20150529
  Serious: Yes (Other)
  Sender: FDA-Public Use
  Company Number: COR_00170_2014

PATIENT
  Age: 46 Year
  Sex: Female

DRUGS (3)
  1. IFOSFAMIDE (IFOSFAMIDE) [Suspect]
     Active Substance: IFOSFAMIDE
     Indication: ACUTE MYELOID LEUKAEMIA
     Dosage: (DF)?
     Dates: end: 2004
  2. ETOPOSIDE (ETOPOSIDE) [Suspect]
     Active Substance: ETOPOSIDE
     Indication: ACUTE MYELOID LEUKAEMIA
     Dosage: (DF)
     Dates: end: 2004
  3. CARBOPLATIN. [Suspect]
     Active Substance: CARBOPLATIN
     Indication: ACUTE MYELOID LEUKAEMIA
     Dosage: (DF)?
     Dates: end: 2004

REACTIONS (10)
  - Cardiac failure [None]
  - Haemorrhage [None]
  - Septic shock [None]
  - Ascites [None]
  - Neutropenia [None]
  - Necrotising colitis [None]
  - Aspergillus infection [None]
  - Toxicity to various agents [None]
  - Pleural effusion [None]
  - Respiratory failure [None]
